FAERS Safety Report 6251937-2 (Version None)
Quarter: 2009Q2

REPORT INFORMATION
  Report Type: 
  Country: None (occurrence: None)
  Receive Date: 20090630
  Receipt Date: 20090626
  Transmission Date: 20091009
  Serious: Yes (Death)
  Sender: FDA-Public Use
  Company Number: PHEH2009US06786

PATIENT
  Sex: Male

DRUGS (4)
  1. TASIGNA [Suspect]
     Indication: HEPATIC NEOPLASM
     Dosage: 200 MG, BID
     Route: 048
     Dates: start: 20090311, end: 20090323
  2. TOPROL-XL [Concomitant]
  3. ACCUPRIL [Concomitant]
  4. OXYCONTIN [Concomitant]

REACTIONS (1)
  - DEATH [None]
